FAERS Safety Report 10357789 (Version 2)
Quarter: 2015Q1

REPORT INFORMATION
  Report Type: Spontaneous
  Country: JP (occurrence: JP)
  Receive Date: 20140801
  Receipt Date: 20150310
  Transmission Date: 20150720
  Serious: Yes (Other)
  Sender: FDA-Public Use
  Company Number: PHHY2012JP133319

PATIENT

DRUGS (1)
  1. TASIGNA [Suspect]
     Active Substance: NILOTINIB
     Indication: CHRONIC MYELOID LEUKAEMIA
     Dosage: 600 MG, QD
     Route: 065
     Dates: start: 201110, end: 201211

REACTIONS (2)
  - Gene mutation identification test positive [Recovered/Resolved]
  - Drug resistance [Recovered/Resolved]

NARRATIVE: CASE EVENT DATE: 201211
